FAERS Safety Report 9897162 (Version 3)
Quarter: 2014Q2

REPORT INFORMATION
  Report Type: Spontaneous
  Country: BR (occurrence: BR)
  Receive Date: 20140214
  Receipt Date: 20140407
  Transmission Date: 20141212
  Serious: Yes (Other)
  Sender: FDA-Public Use
  Company Number: BR-BRISTOL-MYERS SQUIBB COMPANY-20139390

PATIENT
  Age: 48 Year
  Sex: Female
  Weight: 53 kg

DRUGS (2)
  1. REYATAZ CAPS 200 MG [Suspect]
     Indication: HIV INFECTION
     Dosage: TABS
     Route: 048
     Dates: start: 2011
  2. LAMIVUDINE + ZIDOVUDINE [Concomitant]

REACTIONS (13)
  - Ischaemia [Not Recovered/Not Resolved]
  - Headache [Not Recovered/Not Resolved]
  - Nervousness [Not Recovered/Not Resolved]
  - Urinary tract infection [Recovering/Resolving]
  - Electrocardiogram abnormal [Unknown]
  - Dizziness [Unknown]
  - Hypotension [Unknown]
  - Fatigue [Unknown]
  - Vascular pain [Unknown]
  - Pain [Unknown]
  - Weight decreased [Unknown]
  - Ear pain [Unknown]
  - Blood triglycerides increased [Unknown]
